FAERS Safety Report 7233457-1 (Version None)
Quarter: 2011Q1

REPORT INFORMATION
  Report Type: 
  Country: None (occurrence: None)
  Receive Date: 20110119
  Receipt Date: 20110119
  Transmission Date: 20110831
  Serious: Yes (Other)
  Sender: FDA-Public Use
  Company Number: SG-PFIZER INC-2011001456

PATIENT
  Age: 34 Year
  Sex: Female

DRUGS (1)
  1. PHENELZINE SULFATE [Suspect]
     Dosage: 22.5 MG(NOON)+15 MG(BEDTIME)

REACTIONS (3)
  - HYPERTENSION [None]
  - MYOCARDIAL INFARCTION [None]
  - FOOD INTERACTION [None]
